FAERS Safety Report 7080715-X (Version None)
Quarter: 2010Q4

REPORT INFORMATION
  Report Type: 
  Country: None (occurrence: None)
  Receive Date: 20101022
  Receipt Date: 20101012
  Transmission Date: 20110411
  Serious: Yes (Hospitalization)
  Sender: FDA-Public Use
  Company Number: 721856

PATIENT
  Age: 48 Year
  Sex: Female
  Weight: 61 kg

DRUGS (8)
  1. PRECEDEX [Suspect]
     Indication: SEDATION
     Dosage: 2-7 ML/HR, INTRAVENOUS DRIP
     Route: 041
     Dates: start: 20100323, end: 20100325
  2. FENTANYL [Concomitant]
  3. MEROPENEM [Concomitant]
  4. OMEPRAZOLE [Concomitant]
  5. METHYLPREDNISOLONE SODIUM SUCCINATE [Concomitant]
  6. PREDNISOLONE [Concomitant]
  7. LACTATED RINGER'S [Concomitant]
  8. (PARENTERAL) [Concomitant]

REACTIONS (5)
  - BRADYCARDIA [None]
  - MUSCULAR WEAKNESS [None]
  - PNEUMONIA ASPIRATION [None]
  - RESPIRATORY FAILURE [None]
  - SALIVARY HYPERSECRETION [None]
